FAERS Safety Report 11821236 (Version 2)
Quarter: 2016Q1

REPORT INFORMATION
  Report Type: Report from Study
  Country: US (occurrence: US)
  Receive Date: 20151210
  Receipt Date: 20160104
  Transmission Date: 20160525
  Serious: Yes (Death, Hospitalization)
  Sender: FDA-Public Use
  Company Number: PHEH2015US025586

PATIENT
  Sex: Female

DRUGS (1)
  1. EXJADE [Suspect]
     Active Substance: DEFERASIROX
     Indication: MYELODYSPLASTIC SYNDROME
     Dosage: 625 MG, QD
     Route: 048

REACTIONS (4)
  - Sepsis [Fatal]
  - Septic shock [Fatal]
  - Cardio-respiratory arrest [Fatal]
  - Pneumonia [Fatal]
